FAERS Safety Report 15324262 (Version 1)
Quarter: 2018Q3

REPORT INFORMATION
  Report Type: Spontaneous
  Country: GB (occurrence: GB)
  Receive Date: 20180828
  Receipt Date: 20180828
  Transmission Date: 20181010
  Serious: Yes (Other)
  Sender: FDA-Public Use
  Company Number: GB-TEVA-2018-GB-948424

PATIENT
  Age: 63 Year
  Sex: Female
  Weight: 69.85 kg

DRUGS (8)
  1. OMEPRAZOLE. [Concomitant]
     Active Substance: OMEPRAZOLE
     Dosage: 20 MILLIGRAM DAILY;
  2. VENTOLIN [Concomitant]
     Active Substance: ALBUTEROL SULFATE
     Dosage: BEEN TAKING LONG TERM.
  3. SIMVASTATIN. [Concomitant]
     Active Substance: SIMVASTATIN
     Dosage: 40 MILLIGRAM DAILY;
  4. CLENIL MODULITE [Concomitant]
     Active Substance: BECLOMETHASONE DIPROPIONATE
     Dosage: 2 DOSAGE FORMS DAILY; MORNING AND EVENING, BEEN TAKING LONG TERM.
  5. RAMIPRIL. [Suspect]
     Active Substance: RAMIPRIL
     Indication: HYPERTENSION
     Dosage: 2.5 MILLIGRAM DAILY;
     Dates: start: 20180718, end: 20180720
  6. TRAMADOL. [Concomitant]
     Active Substance: TRAMADOL
     Indication: PROCEDURAL PAIN
     Dosage: STOPPED A WEEK BEFORE STARTING RAMIPRIL.
  7. BENDROFLUMETHIAZIDE [Concomitant]
     Active Substance: BENDROFLUMETHIAZIDE
     Dosage: 2.5 MILLIGRAM DAILY;
  8. NAPROXEN. [Concomitant]
     Active Substance: NAPROXEN
     Indication: PROCEDURAL PAIN
     Dosage: 1000 MILLIGRAM DAILY; 500MG TIMES 2 DAILY. TAKING LAST 10 YEARS.

REACTIONS (3)
  - Tongue ulceration [Recovering/Resolving]
  - Mouth ulceration [Recovering/Resolving]
  - Gingival ulceration [Recovering/Resolving]

NARRATIVE: CASE EVENT DATE: 20180719
